FAERS Safety Report 10177388 (Version 1)
Quarter: 2014Q2

REPORT INFORMATION
  Report Type: Spontaneous
  Country: US (occurrence: US)
  Receive Date: 20140516
  Receipt Date: 20140516
  Transmission Date: 20141212
  Serious: No
  Sender: FDA-Public Use
  Company Number: US-TARO-2013P1018668

PATIENT
  Age: 56 Year
  Sex: Female
  Weight: 77.11 kg

DRUGS (2)
  1. CLORAZEPATE DIPOTASSIUM TABLETS USP 15 MG [Suspect]
     Indication: PANIC ATTACK
     Route: 048
     Dates: start: 2008
  2. SYNTHROID [Concomitant]

REACTIONS (3)
  - Drug ineffective [Unknown]
  - Influenza like illness [Recovering/Resolving]
  - Abdominal discomfort [Recovering/Resolving]
